FAERS Safety Report 21041068 (Version 3)
Quarter: 2022Q3

REPORT INFORMATION
  Report Type: Report from Study
  Country: JP (occurrence: JP)
  Receive Date: 20220705
  Receipt Date: 20220818
  Transmission Date: 20221027
  Serious: Yes (Other)
  Sender: FDA-Public Use
  Company Number: JP-ABBVIE-22K-087-4415163-00

PATIENT
  Age: 75 Year
  Sex: Male

DRUGS (2)
  1. CARBIDOPA\LEVODOPA [Suspect]
     Active Substance: CARBIDOPA\LEVODOPA
     Indication: Parkinson^s disease
     Route: 050
     Dates: start: 20220509
  2. CARBIDOPA\LEVODOPA [Suspect]
     Active Substance: CARBIDOPA\LEVODOPA

REACTIONS (21)
  - Altered state of consciousness [Recovering/Resolving]
  - Loss of consciousness [Unknown]
  - Hypoacusis [Unknown]
  - Heat illness [Unknown]
  - Feeding disorder [Recovering/Resolving]
  - Tremor [Unknown]
  - Nausea [Unknown]
  - Vomiting [Unknown]
  - Pyrexia [Not Recovered/Not Resolved]
  - Abdominal pain [Recovering/Resolving]
  - Drug ineffective [Unknown]
  - Dyskinesia [Unknown]
  - Stoma site abscess [Unknown]
  - Stoma site discharge [Unknown]
  - Stoma site pain [Unknown]
  - Epistaxis [Unknown]
  - Gingival pain [Unknown]
  - Malaise [Unknown]
  - Dizziness [Unknown]
  - Stoma site hypergranulation [Unknown]
  - Freezing phenomenon [Unknown]

NARRATIVE: CASE EVENT DATE: 20220501
